FAERS Safety Report 8660644 (Version 4)
Quarter: 2013Q2

REPORT INFORMATION
  Report Type: Spontaneous
  Country: US (occurrence: US)
  Receive Date: 20120711
  Receipt Date: 20130514
  Transmission Date: 20140414
  Serious: Yes (Other)
  Sender: FDA-Public Use
  Company Number: US-009507513-2012SP036945

PATIENT
  Sex: Female
  Weight: 75.74 kg

DRUGS (5)
  1. NUVARING [Suspect]
     Indication: CONTRACEPTION
     Dosage: 3 WEEKS AND 1 WEEK OFF
     Route: 067
     Dates: start: 20100620, end: 20100708
  2. CYCLOBENZAPRINE HYDROCHLORIDE [Concomitant]
     Dosage: 10 MG, TID PRN
     Route: 048
  3. SLOW FE [Concomitant]
     Route: 048
  4. OMEGA-3 MARINE TRIGLYCERIDES [Concomitant]
     Indication: DYSLIPIDAEMIA
     Dosage: 1000 MG, QOD
     Route: 048
  5. VITAMINS (UNSPECIFIED) [Concomitant]
     Route: 048

REACTIONS (2)
  - Mammoplasty [Unknown]
  - Deep vein thrombosis [Recovered/Resolved]
